FAERS Safety Report 5583066-5 (Version None)
Quarter: 2008Q1

REPORT INFORMATION
  Report Type: 
  Country: None (occurrence: None)
  Receive Date: 20080107
  Receipt Date: 20080103
  Transmission Date: 20080703
  Serious: Yes (Life-Threatening, Hospitalization, Other)
  Sender: FDA-Public Use
  Company Number: B0500915A

PATIENT
  Age: 58 Year
  Sex: Female

DRUGS (3)
  1. AUGMENTIN '125' [Suspect]
     Indication: RESPIRATORY TRACT INFECTION
     Dosage: 375MG SINGLE DOSE
     Route: 048
     Dates: start: 20071130, end: 20071130
  2. GINKGO BILOBA [Concomitant]
  3. FUCITHALMIC [Concomitant]

REACTIONS (1)
  - ANAPHYLACTOID REACTION [None]
